FAERS Safety Report 4766414-5 (Version None)
Quarter: 2005Q3

REPORT INFORMATION
  Report Type: 
  Country: None (occurrence: None)
  Receive Date: 20050912
  Receipt Date: 20050830
  Transmission Date: 20060218
  Serious: Yes (Death, Hospitalization, Other)
  Sender: FDA-Public Use
  Company Number: US-JNJFOC-20050103902

PATIENT
  Sex: Male
  Weight: 92 kg

DRUGS (15)
  1. BLINDED; NESIRITIDE [Suspect]
     Route: 042
     Dates: start: 20050106, end: 20050107
  2. BLINDED; NESIRITIDE [Suspect]
     Dosage: 0.01 UG/KG/MIN INFUSION OR PLACEBO
     Route: 042
     Dates: start: 20050106, end: 20050107
  3. PRIMACOR [Concomitant]
     Route: 042
  4. BUMEX [Concomitant]
     Route: 042
  5. NITROGLYCERIN [Concomitant]
     Route: 042
  6. ASPIRIN [Concomitant]
     Route: 050
  7. REGLAN [Concomitant]
     Route: 042
  8. PROTONIX [Concomitant]
     Route: 042
  9. RISPERDAL [Concomitant]
     Route: 050
  10. VANCOMYCIN [Concomitant]
     Route: 042
  11. KAYEXOLATE [Concomitant]
     Route: 050
  12. ALBUMIN (HUMAN) [Concomitant]
     Route: 042
  13. LASIX [Concomitant]
     Route: 042
  14. LEVAPHED [Concomitant]
     Dosage: 1.0 UL/HR
     Route: 042
  15. PRECEDEX [Concomitant]
     Route: 042

REACTIONS (5)
  - ATRIAL FIBRILLATION [None]
  - HYPOTENSION [None]
  - INFECTION [None]
  - RENAL FAILURE [None]
  - RESPIRATORY FAILURE [None]
